FAERS Safety Report 8494611-4 (Version None)
Quarter: 2012Q3

REPORT INFORMATION
  Report Type: 
  Country: None (occurrence: None)
  Receive Date: 20120709
  Receipt Date: 20120627
  Transmission Date: 20120928
  Serious: Yes (Other)
  Sender: FDA-Public Use
  Company Number: US-JNJFOC-20120614083

PATIENT
  Sex: Female
  Weight: 51.71 kg

DRUGS (5)
  1. REMICADE [Suspect]
     Indication: RHEUMATOID ARTHRITIS
     Route: 042
     Dates: start: 20110101, end: 20120101
  2. REMICADE [Suspect]
     Route: 042
     Dates: start: 20110101, end: 20120101
  3. REMICADE [Suspect]
     Route: 042
     Dates: start: 20120601
  4. REMICADE [Suspect]
     Indication: COLITIS
     Route: 042
     Dates: start: 20120601
  5. ATENOLOL [Concomitant]
     Route: 065

REACTIONS (6)
  - LIMB DISCOMFORT [None]
  - ANAEMIA [None]
  - BLOOD POTASSIUM DECREASED [None]
  - MIGRAINE [None]
  - COLITIS [None]
  - DRUG INEFFECTIVE [None]
